FAERS Safety Report 7889306-1 (Version None)
Quarter: 2011Q4

REPORT INFORMATION
  Report Type: 
  Country: None (occurrence: None)
  Receive Date: 20111103
  Receipt Date: 20111026
  Transmission Date: 20120403
  Serious: Yes (Death, Hospitalization)
  Sender: FDA-Public Use
  Company Number: IT-BAYER-2011-097205

PATIENT
  Age: 91 Year
  Sex: Female

DRUGS (3)
  1. TIMOLOL MALEATE [Concomitant]
     Indication: GLAUCOMA
     Route: 047
  2. LATANOPROST [Concomitant]
     Indication: GLAUCOMA
     Route: 047
  3. ASPIRIN [Suspect]
     Indication: CARDIOVASCULAR EVENT PROPHYLAXIS
     Dosage: 100 MG, QD
     Route: 048
     Dates: start: 20090101, end: 20110517

REACTIONS (3)
  - CEREBRAL HAEMORRHAGE [None]
  - PNEUMONIA [None]
  - ACUTE PULMONARY OEDEMA [None]
